FAERS Safety Report 5583095-1 (Version None)
Quarter: 2008Q1

REPORT INFORMATION
  Report Type: 
  Country: None (occurrence: None)
  Receive Date: 20080107
  Receipt Date: 20080102
  Transmission Date: 20080703
  Serious: Yes (Death, Hospitalization)
  Sender: FDA-Public Use
  Company Number: US-JNJFOC-20070901884

PATIENT
  Sex: Female
  Weight: 106.6 kg

DRUGS (13)
  1. REMICADE [Suspect]
     Route: 042
  2. REMICADE [Suspect]
     Indication: RHEUMATOID ARTHRITIS
     Route: 042
  3. MTX [Concomitant]
  4. FLEXERIL [Concomitant]
     Indication: INTERVERTEBRAL DISC DEGENERATION
  5. PREDNISONE TAB [Concomitant]
  6. MORPHINE [Concomitant]
  7. NITROGLYCERIN [Concomitant]
  8. TOPROL-XL [Concomitant]
     Indication: HYPERTENSION
  9. REGLAN [Concomitant]
     Indication: GASTROOESOPHAGEAL REFLUX DISEASE
  10. NEURONTIN [Concomitant]
     Indication: NEUROPATHY PERIPHERAL
  11. ACTONEL [Concomitant]
     Indication: OSTEOPOROSIS
  12. PRILOSEC [Concomitant]
     Indication: GASTROOESOPHAGEAL REFLUX DISEASE
  13. FOLIC ACID [Concomitant]

REACTIONS (7)
  - ANOXIC ENCEPHALOPATHY [None]
  - BRADYCARDIA [None]
  - CARDIO-RESPIRATORY ARREST [None]
  - DRUG ADMINISTRATION ERROR [None]
  - METABOLIC ACIDOSIS [None]
  - PNEUMONIA [None]
  - RENAL FAILURE [None]
